FAERS Safety Report 14915115 (Version 1)
Quarter: 2018Q2

REPORT INFORMATION
  Report Type: Spontaneous
  Country: JP (occurrence: JP)
  Receive Date: 20180518
  Receipt Date: 20180518
  Transmission Date: 20180711
  Serious: Yes (Hospitalization, Other)
  Sender: FDA-Public Use
  Company Number: JP-PFIZER INC-2018050477

PATIENT
  Age: 63 Year
  Sex: Female
  Weight: 64 kg

DRUGS (3)
  1. XALKORI [Suspect]
     Active Substance: CRIZOTINIB
     Indication: LUNG NEOPLASM MALIGNANT
     Dosage: 250 MG, 2X/DAY
     Route: 048
     Dates: start: 20180115, end: 20180201
  2. BACTRAMIN [Concomitant]
     Active Substance: SULFAMETHOXAZOLE\TRIMETHOPRIM
     Indication: ANTIFUNGAL PROPHYLAXIS
     Dosage: 0.005-1(UNKNOWN UNIT), 1X/DAY
     Route: 048
     Dates: start: 20171121, end: 20180124
  3. XALKORI [Suspect]
     Active Substance: CRIZOTINIB
     Dosage: 200 MG, 2X/DAY
     Route: 048
     Dates: start: 20180202, end: 20180204

REACTIONS (11)
  - Nausea [Unknown]
  - Rash [Unknown]
  - Pyrexia [Unknown]
  - Blood pressure decreased [Unknown]
  - Pruritus [Unknown]
  - Asthenia [Unknown]
  - Hepatic function abnormal [Recovered/Resolved]
  - Loss of consciousness [Unknown]
  - Erythema [Unknown]
  - Altered state of consciousness [Unknown]
  - Vomiting [Unknown]

NARRATIVE: CASE EVENT DATE: 20180201
